FAERS Safety Report 16184360 (Version 1)
Quarter: 2019Q2

REPORT INFORMATION
  Report Type: Spontaneous
  Country: US (occurrence: US)
  Receive Date: 20190410
  Receipt Date: 20190410
  Transmission Date: 20190711
  Serious: Yes (Hospitalization)
  Sender: FDA-Public Use
  Company Number: None

PATIENT
  Age: 59 Year
  Sex: Male

DRUGS (10)
  1. LISINOPRIL/HCTZ [Concomitant]
     Active Substance: HYDROCHLOROTHIAZIDE\LISINOPRIL
     Dates: start: 20190409
  2. ASPIRIN. [Concomitant]
     Active Substance: ASPIRIN
     Dates: start: 20180702
  3. VITAMIN D3 [Concomitant]
     Active Substance: CHOLECALCIFEROL
     Dates: start: 20180702
  4. MILK THISTLE [Concomitant]
     Active Substance: DIETARY SUPPLEMENT\HERBALS\MILK THISTLE
     Dates: start: 20180702
  5. FISH OIL [Concomitant]
     Active Substance: FISH OIL
     Dates: start: 20180702
  6. REBIF [Suspect]
     Active Substance: INTERFERON BETA-1A
     Indication: MULTIPLE SCLEROSIS
     Dosage: ?          OTHER FREQUENCY:THREE TIMES A WEEK;?
     Route: 058
  7. LISINOPRIL. [Concomitant]
     Active Substance: LISINOPRIL
     Dates: start: 20180702
  8. MULTIPLE VITAMIN [Concomitant]
     Active Substance: VITAMINS
     Dates: start: 20180702
  9. COENYME Q10 [Concomitant]
     Dates: start: 20180702
  10. PROVIGIL [Concomitant]
     Active Substance: MODAFINIL
     Dates: start: 20180702

REACTIONS (2)
  - Speech disorder [None]
  - Laryngeal cancer [None]

NARRATIVE: CASE EVENT DATE: 20190409
